FAERS Safety Report 6146508-2 (Version None)
Quarter: 2009Q2

REPORT INFORMATION
  Report Type: 
  Country: None (occurrence: None)
  Receive Date: 20090403
  Receipt Date: 20090325
  Transmission Date: 20091009
  Serious: Yes (Hospitalization, Other)
  Sender: FDA-Public Use
  Company Number: 2009SP001261

PATIENT
  Age: 48 Year
  Sex: Female
  Weight: 66.6788 kg

DRUGS (5)
  1. PEG-INTRON [Suspect]
     Indication: HEPATITIS C
     Dosage: SC
     Route: 058
     Dates: start: 20081014, end: 20090320
  2. REBETOL [Suspect]
     Indication: HEPATITIS C
     Dosage: PO
     Route: 048
     Dates: start: 20081014, end: 20090320
  3. SULFA [Suspect]
     Indication: CELLULITIS
  4. LEXAPRO [Concomitant]
  5. VALIUM [Concomitant]

REACTIONS (35)
  - ABSCESS LIMB [None]
  - ALOPECIA [None]
  - ANXIETY [None]
  - APHONIA [None]
  - APHTHOUS STOMATITIS [None]
  - ARTHRALGIA [None]
  - BACK PAIN [None]
  - BLOOD POTASSIUM DECREASED [None]
  - CELLULITIS [None]
  - CELLULITIS STAPHYLOCOCCAL [None]
  - CONFUSIONAL STATE [None]
  - CONVULSION [None]
  - DEPRESSION [None]
  - DRUG HYPERSENSITIVITY [None]
  - ERYTHEMA [None]
  - FATIGUE [None]
  - FEELING JITTERY [None]
  - GASTRIC DISORDER [None]
  - INFECTION [None]
  - INSOMNIA [None]
  - LIMB INJURY [None]
  - LIP BLISTER [None]
  - MEMORY IMPAIRMENT [None]
  - NERVOUSNESS [None]
  - OEDEMA PERIPHERAL [None]
  - OROPHARYNGEAL PAIN [None]
  - PAIN IN EXTREMITY [None]
  - PSYCHOTIC DISORDER [None]
  - REFUSAL OF TREATMENT BY PATIENT [None]
  - SCRATCH [None]
  - SUICIDAL IDEATION [None]
  - SWELLING FACE [None]
  - VOMITING [None]
  - WEIGHT DECREASED [None]
  - WHITE BLOOD CELL COUNT DECREASED [None]
